FAERS Safety Report 4732716-1 (Version None)
Quarter: 2005Q3

REPORT INFORMATION
  Report Type: 
  Country: None (occurrence: None)
  Receive Date: 20050803
  Receipt Date: 20050728
  Transmission Date: 20060218
  Serious: Yes (Death)
  Sender: FDA-Public Use
  Company Number: 2005UW11240

PATIENT
  Age: 55 Year
  Sex: Female
  Weight: 44.9 kg

DRUGS (3)
  1. IRESSA [Suspect]
     Indication: BREAST CANCER
  2. AVASTIN IV [Concomitant]
     Route: 042
  3. LEXAPRO [Concomitant]
     Route: 048

REACTIONS (1)
  - SEPSIS [None]
